FAERS Safety Report 19265222 (Version 1)
Quarter: 2021Q2

REPORT INFORMATION
  Report Type: Spontaneous
  Country: HK (occurrence: HK)
  Receive Date: 20210517
  Receipt Date: 20210517
  Transmission Date: 20210717
  Serious: Yes (Other)
  Sender: FDA-Public Use
  Company Number: HK-OTSUKA-2021_016246

PATIENT
  Age: 2 Year
  Sex: Female

DRUGS (9)
  1. FLUDARABINE [Suspect]
     Active Substance: FLUDARABINE PHOSPHATE
     Indication: BONE MARROW CONDITIONING REGIMEN
     Dosage: 40 MG/M2 FOUR DOSES (DAY ?5 TO ?2),
     Route: 065
     Dates: start: 2010
  2. CYCLOSPORIN A [Suspect]
     Active Substance: CYCLOSPORINE
     Indication: PROPHYLAXIS AGAINST GRAFT VERSUS HOST DISEASE
     Dosage: 2.5 MG/KG (EVERY 12 HOURS FROM DAY ?1)
     Route: 042
  3. CYCLOSPORIN A [Suspect]
     Active Substance: CYCLOSPORINE
     Dosage: 1.5 MG/KG (EVERY 12 HOURS)
     Route: 042
  4. FLUDARABINE [Suspect]
     Active Substance: FLUDARABINE PHOSPHATE
     Indication: THALASSAEMIA
     Dosage: 40 MG/M2 FOUR DOSES (DAY ?8 TO ?5),
     Route: 065
     Dates: start: 2010
  5. THIOTEPA. [Suspect]
     Active Substance: THIOTEPA
     Indication: BONE MARROW CONDITIONING REGIMEN
     Dosage: 10 MG/KG (DAY ?6)
     Route: 065
     Dates: start: 2010
  6. MYCOPHENOLATE MOFETIL. [Suspect]
     Active Substance: MYCOPHENOLATE MOFETIL
     Indication: PROPHYLAXIS AGAINST GRAFT VERSUS HOST DISEASE
     Dosage: 15 MG/KG (EVERY 8 HOUR FROM DAY ?3)
     Route: 042
  7. BUSULFAN. [Suspect]
     Active Substance: BUSULFAN
     Indication: THALASSAEMIA
     Dosage: 0.8?1.1 MG/KG FOR 12 DOSES (DAY ?7 TO ?5)
     Route: 042
     Dates: start: 2010
  8. BUSULFAN. [Suspect]
     Active Substance: BUSULFAN
     Indication: BONE MARROW CONDITIONING REGIMEN
     Dosage: 0.8?1.1 MG/KG FOR 16 DOSES (DAY ?10 TO ?7)
     Route: 042
     Dates: start: 2010
  9. THIOTEPA. [Suspect]
     Active Substance: THIOTEPA
     Indication: THALASSAEMIA
     Dosage: 10 MG/KG (DAY ?4)
     Route: 065
     Dates: start: 2010

REACTIONS (3)
  - Autoimmune haemolytic anaemia [Unknown]
  - Product use in unapproved indication [Unknown]
  - Sepsis [Unknown]
